FAERS Safety Report 5668685-X (Version None)
Quarter: 2008Q1

REPORT INFORMATION
  Report Type: 
  Country: None (occurrence: None)
  Receive Date: 20080312
  Receipt Date: 20080225
  Transmission Date: 20080703
  Serious: Yes (Hospitalization, Other)
  Sender: FDA-Public Use
  Company Number: E2090-00177-SPO-JP

PATIENT
  Age: 71 Year
  Sex: Male

DRUGS (1)
  1. ZONISAMIDE [Suspect]
     Indication: EPILEPSY
     Dosage: 300 MG, 1 IN 1 D; ORAL
     Route: 048

REACTIONS (5)
  - DISEASE RECURRENCE [None]
  - DRUG RASH WITH EOSINOPHILIA AND SYSTEMIC SYMPTOMS [None]
  - HUMAN HERPESVIRUS 6 INFECTION [None]
  - LYMPHOCYTE STIMULATION TEST POSITIVE [None]
  - TOXIC EPIDERMAL NECROLYSIS [None]
